FAERS Safety Report 10914784 (Version 3)
Quarter: 2015Q2

REPORT INFORMATION
  Report Type: Spontaneous
  Country: US (occurrence: US)
  Receive Date: 20150313
  Receipt Date: 20150522
  Transmission Date: 20150821
  Serious: Yes (Other)
  Sender: FDA-Public Use
  Company Number: US-ALLERGAN-1501289US

PATIENT
  Age: 64 Year
  Sex: Female
  Weight: 56.69 kg

DRUGS (7)
  1. LUNESTA [Concomitant]
     Active Substance: ESZOPICLONE
     Indication: SLEEP DISORDER
     Dosage: 3 MG, QD
     Route: 048
  2. BOTOX [Suspect]
     Active Substance: ONABOTULINUMTOXINA
     Dosage: 155 UNITS, SINGLE
     Route: 030
     Dates: start: 20140228, end: 20140228
  3. XYZAL [Concomitant]
     Active Substance: LEVOCETIRIZINE DIHYDROCHLORIDE
     Dosage: UNK UNK, PRN
  4. MAGNESIUM [Concomitant]
     Active Substance: MAGNESIUM
  5. BOTOX [Suspect]
     Active Substance: ONABOTULINUMTOXINA
     Indication: MIGRAINE
     Dosage: 155 UNITS, SINGLE
     Route: 030
     Dates: start: 20140604, end: 20140604
  6. POTASIUM M [Concomitant]
  7. ONDANSETRON [Concomitant]
     Active Substance: ONDANSETRON
     Dosage: 4 MG TBSP, PRN

REACTIONS (16)
  - Rash pustular [Unknown]
  - Dry eye [Not Recovered/Not Resolved]
  - Foreign body sensation in eyes [Unknown]
  - Sleep apnoea syndrome [Unknown]
  - Eye pain [Recovering/Resolving]
  - Tinnitus [Unknown]
  - Eye haemorrhage [Recovering/Resolving]
  - Lacrimation increased [Not Recovered/Not Resolved]
  - Eye pruritus [Unknown]
  - Muscle spasms [Unknown]
  - Pain in jaw [Not Recovered/Not Resolved]
  - Blood pressure increased [Unknown]
  - Intraocular haematoma [Unknown]
  - Neck pain [Unknown]
  - Headache [Unknown]
  - Chest discomfort [Unknown]

NARRATIVE: CASE EVENT DATE: 20140317
